FAERS Safety Report 10130983 (Version 1)
Quarter: 2014Q2

REPORT INFORMATION
  Report Type: Spontaneous
  Country: US (occurrence: None)
  Receive Date: 20140425
  Receipt Date: 20140425
  Transmission Date: 20141212
  Serious: Yes (Death, Hospitalization)
  Sender: FDA-Public Use
  Company Number: None

PATIENT
  Age: 62 Year
  Sex: Male
  Weight: 83.92 kg

DRUGS (13)
  1. OLYSIO [Suspect]
     Indication: HEPATITIS C
     Route: 048
     Dates: start: 20140314, end: 20140403
  2. SOVALDI [Suspect]
     Route: 048
     Dates: start: 20140314, end: 20140403
  3. AMLODIPINE [Concomitant]
  4. ASPIRIN [Concomitant]
  5. CLOPIDOGREL [Concomitant]
  6. LISINOPRIL [Concomitant]
  7. NADOLOL [Concomitant]
  8. OMEPRAZOLE [Concomitant]
  9. SORAFENIB [Concomitant]
  10. TRIAMTERENE-HYDROCHLOROTHIAZIDE [Concomitant]
  11. FUROSEMIDE [Concomitant]
  12. POLYETHLANE GLYCOL [Concomitant]
  13. SPIRONOLACTONE [Concomitant]

REACTIONS (6)
  - Hepatic encephalopathy [None]
  - Hepatorenal syndrome [None]
  - Hepatocellular carcinoma [None]
  - Hepatic failure [None]
  - Metastases to lung [None]
  - Renal failure acute [None]
